FAERS Safety Report 20473415 (Version 6)
Quarter: 2022Q2

REPORT INFORMATION
  Report Type: Spontaneous
  Country: US (occurrence: US)
  Receive Date: 20220215
  Receipt Date: 20220402
  Transmission Date: 20220720
  Serious: Yes (Death, Other)
  Sender: FDA-Public Use
  Company Number: US-UNITED THERAPEUTICS-UNT-2022-002262

PATIENT
  Age: 62 Year
  Sex: Female
  Weight: 81.633 kg

DRUGS (7)
  1. TYVASO [Suspect]
     Active Substance: TREPROSTINIL
     Indication: Pulmonary arterial hypertension
     Dosage: 18 ?G
     Dates: start: 20220127
  2. TYVASO [Suspect]
     Active Substance: TREPROSTINIL
     Dosage: 18-72 ?G, QID
  3. TYVASO [Suspect]
     Active Substance: TREPROSTINIL
     Dosage: UNK
     Dates: end: 20220227
  4. MODERNA COVID-19 VACCINE [Suspect]
     Active Substance: ELASOMERAN
     Indication: COVID-19 immunisation
     Dosage: UNK
     Route: 065
     Dates: start: 20220202, end: 20220202
  5. ESBRIET [Suspect]
     Active Substance: PIRFENIDONE
     Indication: Product used for unknown indication
     Dosage: UNK, TID (3 CAPSULES, 3 TIMES A DAY)
     Route: 065
  6. ESBRIET [Suspect]
     Active Substance: PIRFENIDONE
     Dosage: UNK, BID (3 CAPSULES, 2 TIMES A DAY)
     Route: 065
  7. ELIQUIS [Concomitant]
     Active Substance: APIXABAN
     Indication: Product used for unknown indication
     Dosage: UNK
     Route: 065

REACTIONS (13)
  - Death [Fatal]
  - Dizziness [Unknown]
  - Throat irritation [Unknown]
  - Pain [Unknown]
  - Headache [Unknown]
  - Pain in extremity [Unknown]
  - Cough [Unknown]
  - Nausea [Unknown]
  - Decreased appetite [Unknown]
  - Chest discomfort [Unknown]
  - Feeling abnormal [Unknown]
  - Gastrointestinal disorder [Unknown]
  - Therapy cessation [Unknown]

NARRATIVE: CASE EVENT DATE: 20220127
